FAERS Safety Report 4971476-6 (Version None)
Quarter: 2006Q2

REPORT INFORMATION
  Report Type: 
  Country: None (occurrence: None)
  Receive Date: 20060413
  Receipt Date: 20060403
  Transmission Date: 20061013
  Serious: Yes (Other)
  Sender: FDA-Public Use
  Company Number: PHBS2006IN04931

PATIENT
  Age: 55 Year
  Sex: Male

DRUGS (4)
  1. VOVERAN [Suspect]
  2. MONOCEF [Concomitant]
  3. AMIKACIN [Concomitant]
  4. FENERGAN [Concomitant]

REACTIONS (3)
  - ERYTHEMA [None]
  - INJECTION SITE SWELLING [None]
  - RASH [None]
